FAERS Safety Report 9450321 (Version 1)
Quarter: 2013Q3

REPORT INFORMATION
  Report Type: Report from Study
  Country: BR (occurrence: BR)
  Receive Date: 20130809
  Receipt Date: 20130809
  Transmission Date: 20140515
  Serious: Yes (Hospitalization)
  Sender: FDA-Public Use
  Company Number: PHHY2013BR085714

PATIENT
  Sex: Female

DRUGS (2)
  1. DIOVAN AMLO FIX [Suspect]
     Indication: HYPERTENSION
     Dosage: 1 DF(160/5 MG), PER DAY
  2. MORPHINE [Concomitant]
     Indication: ANALGESIC THERAPY

REACTIONS (3)
  - Pain [Unknown]
  - Urinary tract infection [Recovering/Resolving]
  - Spinal disorder [Recovering/Resolving]
